FAERS Safety Report 7399079-7 (Version None)
Quarter: 2011Q1

REPORT INFORMATION
  Report Type: 
  Country: None (occurrence: None)
  Receive Date: 20110328
  Receipt Date: 20110121
  Transmission Date: 20110831
  Serious: Yes (Death)
  Sender: FDA-Public Use
  Company Number: 2010P1003063

PATIENT
  Age: 77 Year
  Sex: Male
  Weight: 104.3273 kg

DRUGS (10)
  1. FENTANYL PATCH 25 MCG/HR (NO PREF. NAME) [Suspect]
     Indication: PAIN
     Dosage: Q72HRS; TDER
     Route: 062
     Dates: start: 20070101, end: 20101001
  2. NEURONTIN [Concomitant]
  3. VITAMIN B-12 [Concomitant]
  4. GLIMEPIRIDE [Concomitant]
  5. ZOCOR [Concomitant]
  6. LOPRESSOR (METOPROLOL) [Concomitant]
  7. CRANBERRY FRUIT PILL [Concomitant]
  8. POTASSIUM CITRATE [Concomitant]
  9. LASIX [Concomitant]
  10. FENTANYL PATCH 12 MCG/HR (NON-COMPY)  (NO PREF: NAME) [Suspect]

REACTIONS (8)
  - DIZZINESS [None]
  - PRODUCT QUALITY ISSUE [None]
  - TUMOUR INVASION [None]
  - DRUG INEFFECTIVE [None]
  - PRODUCT MEASURED POTENCY ISSUE [None]
  - GAIT DISTURBANCE [None]
  - DEEP VEIN THROMBOSIS [None]
  - RECTAL CANCER [None]
